FAERS Safety Report 5116418-8 (Version None)
Quarter: 2006Q3

REPORT INFORMATION
  Report Type: 
  Country: None (occurrence: None)
  Receive Date: 20060928
  Receipt Date: 20020425
  Transmission Date: 20061208
  Serious: Yes (Other)
  Sender: FDA-Public Use
  Company Number: PHEH2002US04004

PATIENT
  Age: 72 Year
  Sex: Male
  Weight: 86.168 kg

DRUGS (11)
  1. ZOMETA [Suspect]
     Indication: MULTIPLE MYELOMA
     Dosage: 150 ML OVER 15 MINUTES
     Route: 042
     Dates: start: 20020305, end: 20020305
  2. CARDENE [Concomitant]
  3. NADOLOL [Concomitant]
  4. LIPITOR [Concomitant]
  5. WELCHOL [Concomitant]
  6. FOLIC ACID [Concomitant]
  7. ASPIRIN [Concomitant]
  8. MELPHALAN [Concomitant]
     Dosage: 12 MG X 4 DAYS MONTHLY
     Dates: start: 20010601, end: 20011001
  9. PREDNISONE [Concomitant]
     Dosage: 150 MG QD X 4 DAYS MONTHLY
  10. AREDIA [Suspect]
  11. CARDIAC THERAPY [Concomitant]
     Dosage: REPORTED AS ^5 YEARS AGO^
     Dates: start: 20010101

REACTIONS (6)
  - CEREBROVASCULAR ACCIDENT [None]
  - DIZZINESS [None]
  - DYSARTHRIA [None]
  - HYPOTHYROIDISM [None]
  - INFLUENZA LIKE ILLNESS [None]
  - VISION BLURRED [None]
